FAERS Safety Report 4523124-7 (Version None)
Quarter: 2004Q4

REPORT INFORMATION
  Report Type: 
  Country: None (occurrence: None)
  Receive Date: 20041210
  Receipt Date: 20040223
  Transmission Date: 20050328
  Serious: Yes (Other)
  Sender: FDA-Public Use
  Company Number: US-ABBOTT-04P-163-0251145-00

PATIENT
  Sex: Male

DRUGS (10)
  1. KALETRA [Suspect]
     Indication: DRUG EXPOSURE DURING PREGNANCY
  2. NORVIR [Suspect]
     Indication: DRUG EXPOSURE DURING PREGNANCY
  3. ZIDOVUDINE [Suspect]
     Indication: DRUG EXPOSURE DURING PREGNANCY
  4. EPIVIR [Suspect]
     Indication: DRUG EXPOSURE DURING PREGNANCY
  5. VIRACEPT [Suspect]
     Indication: DRUG EXPOSURE DURING PREGNANCY
  6. VIDEX [Suspect]
     Indication: DRUG EXPOSURE DURING PREGNANCY
  7. VIREAD [Suspect]
     Indication: DRUG EXPOSURE DURING PREGNANCY
  8. REYATAZ [Suspect]
     Indication: DRUG EXPOSURE DURING PREGNANCY
  9. COMBIVIR [Suspect]
     Indication: DRUG EXPOSURE DURING PREGNANCY
  10. COMBIVIR [Suspect]

REACTIONS (4)
  - DRUG EXPOSURE DURING PREGNANCY [None]
  - FOETAL CARDIAC DISORDER [None]
  - ULTRASOUND ANTENATAL SCREEN ABNORMAL [None]
  - ULTRASOUND FOETAL [None]
